FAERS Safety Report 11082383 (Version 1)
Quarter: 2015Q2

REPORT INFORMATION
  Report Type: Spontaneous
  Country: US (occurrence: None)
  Receive Date: 20150430
  Receipt Date: 20150430
  Transmission Date: 20150821
  Serious: Yes (Other)
  Sender: FDA-Public Use
  Company Number: None

PATIENT
  Age: 66 Year
  Sex: Female

DRUGS (1)
  1. IMBRUVICA [Suspect]
     Active Substance: IBRUTINIB
     Indication: CHRONIC LYMPHOCYTIC LEUKAEMIA
     Dosage: 140 MG 3 DAILY, DAILY, ORAL
     Route: 048
     Dates: start: 20140304

REACTIONS (2)
  - Otorrhoea [None]
  - Bloody discharge [None]

NARRATIVE: CASE EVENT DATE: 20150429
